FAERS Safety Report 6448153-8 (Version None)
Quarter: 2009Q4

REPORT INFORMATION
  Report Type: 
  Country: None (occurrence: None)
  Receive Date: 20091120
  Receipt Date: 20091110
  Transmission Date: 20100525
  Serious: Yes (Hospitalization)
  Sender: FDA-Public Use
  Company Number: CH-JNJFOC-20091103052

PATIENT
  Age: 72 Year
  Sex: Female
  Weight: 66 kg

DRUGS (9)
  1. REMICADE [Suspect]
     Indication: COLITIS ULCERATIVE
     Route: 042
  2. METHYLPREDNISOLONE 4MG TAB [Concomitant]
     Indication: COLITIS ULCERATIVE
  3. PREDNISONE [Concomitant]
     Indication: COLITIS ULCERATIVE
  4. IMUREK [Concomitant]
     Indication: COLITIS ULCERATIVE
     Route: 048
  5. NOVORAPID [Concomitant]
  6. DIOVAN HCT [Concomitant]
  7. NEXIUM [Concomitant]
  8. NORVASC [Concomitant]
  9. INSULATARD NOS [Concomitant]

REACTIONS (2)
  - CHEST PAIN [None]
  - ELECTROCARDIOGRAM REPOLARISATION ABNORMALITY [None]
